FAERS Safety Report 9012102 (Version 2)
Quarter: 2013Q1

REPORT INFORMATION
  Report Type: Spontaneous
  Country: US (occurrence: None)
  Receive Date: 20121228
  Receipt Date: 20130220
  Transmission Date: 20140127
  Serious: Yes (Other)
  Sender: FDA-Public Use
  Company Number: 2012P1067809

PATIENT
  Age: 74 Year
  Sex: Female

DRUGS (11)
  1. INFUMORPH [Suspect]
     Route: 037
     Dates: start: 20121109
  2. BUPIVACAINE [Suspect]
  3. OXYCONTIN [Concomitant]
  4. PERCOCET [Concomitant]
  5. ONDANSETRON [Concomitant]
  6. PHENERGAN [Concomitant]
  7. ATIVAN [Concomitant]
  8. FOLIC ACID [Concomitant]
  9. KLORCON [Concomitant]
  10. LEVOTHYROXINE [Concomitant]
  11. LIPITOR [Concomitant]

REACTIONS (3)
  - Headache [None]
  - Cerebrospinal fluid leakage [None]
  - Implant site effusion [None]
